FAERS Safety Report 9643088 (Version 3)
Quarter: 2013Q4

REPORT INFORMATION
  Report Type: Spontaneous
  Country: IT (occurrence: IT)
  Receive Date: 20131024
  Receipt Date: 20131128
  Transmission Date: 20140711
  Serious: Yes (Hospitalization)
  Sender: FDA-Public Use
  Company Number: IT-SA-2013SA104468

PATIENT
  Age: 76 Year
  Sex: Male
  Weight: 85 kg

DRUGS (6)
  1. CLOPIDOGREL BISULFATE [Suspect]
     Indication: PRODUCT USED FOR UNKNOWN INDICATION
     Route: 048
     Dates: start: 2012, end: 20131002
  2. CARDIOASPIRIN [Concomitant]
     Dosage: STRENGTH: 100 MG
  3. PANTORC [Concomitant]
     Dosage: STRENGTH: 20 MG
  4. BISOPROLOL [Concomitant]
     Dosage: STRENGTH: 10 MG
  5. TRIATEC [Concomitant]
     Dosage: STRENGTH: 10 MG
  6. TORVAST [Concomitant]
     Dosage: STRENGTH: 10 MG

REACTIONS (6)
  - Coronary artery restenosis [Recovered/Resolved]
  - Drug ineffective [Unknown]
  - Dyspnoea [Recovered/Resolved]
  - Chest pain [Recovered/Resolved]
  - Hyperhidrosis [Recovered/Resolved]
  - Pain [Recovered/Resolved]
